FAERS Safety Report 16423418 (Version 4)
Quarter: 2022Q3

REPORT INFORMATION
  Report Type: Report from Study
  Country: DE (occurrence: DE)
  Receive Date: 20190612
  Receipt Date: 20220823
  Transmission Date: 20221027
  Serious: Yes (Other)
  Sender: FDA-Public Use
  Company Number: PHHY2019DE134994

PATIENT
  Age: 34 Year
  Sex: Male

DRUGS (4)
  1. COSENTYX [Suspect]
     Active Substance: SECUKINUMAB
     Indication: Psoriasis
     Dosage: 300 MG, UNK
     Route: 065
     Dates: start: 20161121, end: 20161219
  2. COSENTYX [Suspect]
     Active Substance: SECUKINUMAB
     Dosage: 300 MG, UNK
     Route: 065
     Dates: start: 20161220, end: 20190603
  3. COSENTYX [Suspect]
     Active Substance: SECUKINUMAB
     Dosage: 300 MG, UNK
     Route: 065
     Dates: start: 20190617, end: 20210411
  4. COSENTYX [Suspect]
     Active Substance: SECUKINUMAB
     Dosage: 300 MG, UNK
     Route: 065
     Dates: start: 20210412

REACTIONS (1)
  - Erysipelas [Recovering/Resolving]

NARRATIVE: CASE EVENT DATE: 20190601
